FAERS Safety Report 9709350 (Version 1)
Quarter: 2013Q4

REPORT INFORMATION
  Report Type: Report from Study
  Country: US (occurrence: US)
  Receive Date: 20131125
  Receipt Date: 20131125
  Transmission Date: 20140711
  Serious: Yes (Other)
  Sender: FDA-Public Use
  Company Number: US-ROCHE-1305167

PATIENT
  Age: 5 Year
  Sex: Male
  Weight: 23.1 kg

DRUGS (3)
  1. NUTROPIN AQ [Suspect]
     Indication: GROWTH HORMONE DEFICIENCY
     Route: 058
     Dates: start: 200803
  2. NUTROPIN AQ [Suspect]
     Dosage: FOR 6 INJECTIONS
     Route: 058
  3. NUTROPIN AQ [Suspect]
     Dosage: ON THE 7TH INJECTION
     Route: 058
     Dates: start: 20130813

REACTIONS (4)
  - Vomiting [Unknown]
  - Weight gain poor [Unknown]
  - Pituitary hypoplasia [Unknown]
  - Nasopharyngitis [Unknown]
